FAERS Safety Report 6694512-8 (Version None)
Quarter: 2010Q2

REPORT INFORMATION
  Report Type: 
  Country: None (occurrence: None)
  Receive Date: 20100420
  Receipt Date: 20100412
  Transmission Date: 20101027
  Serious: Yes (Hospitalization)
  Sender: FDA-Public Use
  Company Number: WAES 1004USA01497

PATIENT
  Age: 40 Year
  Sex: Female

DRUGS (3)
  1. JANUVIA [Suspect]
     Route: 048
     Dates: start: 20100129, end: 20100322
  2. INJ BLINDED THERAPY [Suspect]
     Indication: TYPE 2 DIABETES MELLITUS
     Route: 048
     Dates: start: 20100129, end: 20100322
  3. ATENOLOL [Concomitant]

REACTIONS (2)
  - INJECTION SITE INFECTION [None]
  - INJECTION SITE NODULE [None]
